FAERS Safety Report 6182120-7 (Version None)
Quarter: 2009Q2

REPORT INFORMATION
  Report Type: 
  Country: None (occurrence: None)
  Receive Date: 20090507
  Receipt Date: 20090428
  Transmission Date: 20091009
  Serious: Yes (Other)
  Sender: FDA-Public Use
  Company Number: CZ-PFIZER INC-2009206098

PATIENT

DRUGS (3)
  1. SORTIS [Suspect]
     Route: 048
     Dates: start: 20090417, end: 20090420
  2. TOLPERISONE HYDROCHLORIDE [Concomitant]
  3. BRUFEN [Concomitant]

REACTIONS (3)
  - DRUG ERUPTION [None]
  - GENITAL RASH [None]
  - PENILE SWELLING [None]
